FAERS Safety Report 8621091 (Version 3)
Quarter: 2013Q1

REPORT INFORMATION
  Report Type: Spontaneous
  Country: US (occurrence: None)
  Receive Date: 20120605
  Receipt Date: 20121113
  Transmission Date: 20140127
  Serious: Yes (Other)
  Sender: FDA-Public Use
  Company Number: 2012P1031139

PATIENT
  Age: 80 Year
  Sex: Female
  Weight: 67.13 kg

DRUGS (7)
  1. FENTANYL [Suspect]
     Indication: FIBROMYALGIA
     Dosage: 1 PATCH;Q3D
     Route: 062
     Dates: start: 20120517, end: 20120522
  2. FENTANYL [Suspect]
     Indication: BACK PAIN
     Dosage: 1 PATCH;Q3D
     Route: 062
     Dates: start: 20120517, end: 20120522
  3. NORVASC [Concomitant]
  4. XANAX [Concomitant]
  5. AMITRIPTYLINE [Concomitant]
  6. PRILOSEC [Concomitant]
  7. PROAIR [Concomitant]

REACTIONS (6)
  - Dyspnoea [None]
  - Balance disorder [None]
  - Gait disturbance [None]
  - Headache [None]
  - Vision blurred [None]
  - Dizziness [None]
